FAERS Safety Report 4973039-5 (Version None)
Quarter: 2006Q2

REPORT INFORMATION
  Report Type: 
  Country: None (occurrence: None)
  Receive Date: 20060414
  Receipt Date: 20060214
  Transmission Date: 20061013
  Serious: Yes (Other)
  Sender: FDA-Public Use
  Company Number: 2006AC00296

PATIENT
  Age: 690 Month
  Sex: Male
  Weight: 69 kg

DRUGS (6)
  1. NEXIUM [Suspect]
     Route: 048
     Dates: start: 20040401, end: 20060201
  2. HYTRIN [Concomitant]
     Indication: ILL-DEFINED DISORDER
     Route: 048
     Dates: start: 20010101
  3. PANTOZOL [Concomitant]
     Indication: OESOPHAGITIS
     Route: 048
     Dates: start: 20060201
  4. ALPRAZOLAM [Concomitant]
     Indication: NERVOUSNESS
     Route: 048
     Dates: start: 20051201
  5. PRAZEPAM [Concomitant]
     Indication: NERVOUSNESS
     Dosage: 1/2 A TABLET DAILY
     Route: 048
     Dates: start: 20060201
  6. TERETOL [Concomitant]

REACTIONS (2)
  - PARAESTHESIA [None]
  - POLYNEUROPATHY [None]
